FAERS Safety Report 6421147-4 (Version None)
Quarter: 2009Q4

REPORT INFORMATION
  Report Type: 
  Country: None (occurrence: None)
  Receive Date: 20091030
  Receipt Date: 20090515
  Transmission Date: 20100525
  Serious: Yes (Death)
  Sender: FDA-Public Use
  Company Number: PHEH2009US12792

PATIENT
  Sex: Female
  Weight: 70 kg

DRUGS (11)
  1. EXJADE [Suspect]
     Indication: HAEMOCHROMATOSIS
     Dosage: 1375 MG, QD
     Route: 048
     Dates: start: 20080208
  2. PREDNISONE [Concomitant]
  3. IMITREX ^CERENEX^ [Concomitant]
  4. MACROBID [Concomitant]
  5. GEODON [Concomitant]
  6. BACLOFEN [Concomitant]
  7. FOLIC ACID [Concomitant]
  8. LORTAB [Concomitant]
  9. GLEXA [Concomitant]
  10. NEURONTIN [Concomitant]
  11. PROTONIX [Concomitant]

REACTIONS (1)
  - DEATH [None]
